FAERS Safety Report 10043105 (Version 1)
Quarter: 2014Q1

REPORT INFORMATION
  Report Type: Spontaneous
  Country: US (occurrence: US)
  Receive Date: 20140328
  Receipt Date: 20140328
  Transmission Date: 20141002
  Serious: Yes (Hospitalization)
  Sender: FDA-Public Use
  Company Number: US-BIOGENIDEC-2014BI026614

PATIENT
  Age: 50 Year
  Sex: Female

DRUGS (1)
  1. TECFIDERA [Suspect]
     Indication: MULTIPLE SCLEROSIS
     Route: 048
     Dates: start: 20131203

REACTIONS (7)
  - Head injury [Unknown]
  - Fall [Recovered/Resolved]
  - Muscular weakness [Unknown]
  - Rib fracture [Unknown]
  - Upper limb fracture [Unknown]
  - Gait disturbance [Unknown]
  - Abasia [Unknown]
